FAERS Safety Report 21059346 (Version 2)
Quarter: 2022Q3

REPORT INFORMATION
  Report Type: Spontaneous
  Country: FR (occurrence: FR)
  Receive Date: 20220708
  Receipt Date: 20220722
  Transmission Date: 20221027
  Serious: Yes (Other)
  Sender: FDA-Public Use
  Company Number: FR-BRISTOL-MYERS SQUIBB COMPANY-2022-071096

PATIENT
  Age: 78 Year
  Sex: Male

DRUGS (1)
  1. NIVOLUMAB [Suspect]
     Active Substance: NIVOLUMAB
     Indication: Metastatic squamous cell carcinoma
     Route: 065
     Dates: start: 202004, end: 202007

REACTIONS (2)
  - Pemphigoid [Unknown]
  - Transient acantholytic dermatosis [Unknown]

NARRATIVE: CASE EVENT DATE: 20200701
